FAERS Safety Report 4806459-X (Version None)
Quarter: 2005Q4

REPORT INFORMATION
  Report Type: 
  Country: None (occurrence: None)
  Receive Date: 20051019
  Receipt Date: 20051006
  Transmission Date: 20060501
  Serious: Yes (Other)
  Sender: FDA-Public Use
  Company Number: 2005066672

PATIENT
  Age: 71 Year
  Sex: Female
  Weight: 68.0396 kg

DRUGS (8)
  1. BEXTRA [Suspect]
     Indication: ARTHRITIS
     Dosage: 20 MG (20 MG, 1 IN 1 D), ORAL
     Route: 048
     Dates: end: 20041013
  2. BEXTRA [Suspect]
     Indication: ARTHROPATHY
     Dosage: 20 MG (20 MG, 1 IN 1 D), ORAL
     Route: 048
     Dates: end: 20041013
  3. CELEBREX [Suspect]
     Indication: ANKYLOSING SPONDYLITIS
  4. VIOXX [Suspect]
     Indication: ANKYLOSING SPONDYLITIS
  5. ESTRACE [Concomitant]
  6. CALTRATE + D (CALCIUM CARBONATE, COLECALCIFEROL) [Concomitant]
  7. COSAMIN DS (ASCORBIC ACID, CHONDROITIN SULFATE SODIUM, CLUCOSAMINE HYD [Concomitant]
  8. LASIX [Concomitant]

REACTIONS (12)
  - ANTINUCLEAR ANTIBODY POSITIVE [None]
  - BURSITIS [None]
  - EXOSTOSIS [None]
  - HEADACHE [None]
  - HYPERTENSION [None]
  - INFLUENZA LIKE ILLNESS [None]
  - INJECTION SITE PAIN [None]
  - MENISCUS LESION [None]
  - MUSCLE SPASMS [None]
  - NAUSEA [None]
  - OSTEOARTHRITIS [None]
  - OSTEOPOROSIS [None]
